FAERS Safety Report 24464706 (Version 1)
Quarter: 2024Q4

REPORT INFORMATION
  Report Type: Report from Study
  Country: US (occurrence: US)
  Receive Date: 20241018
  Receipt Date: 20241018
  Transmission Date: 20250115
  Serious: No
  Sender: ROCHE
  Company Number: US-ROCHE-3498021

PATIENT
  Sex: Male
  Weight: 87.54 kg

DRUGS (14)
  1. XOLAIR [Suspect]
     Active Substance: OMALIZUMAB
     Indication: Idiopathic urticaria
     Route: 058
  2. XOLAIR [Suspect]
     Active Substance: OMALIZUMAB
  3. PREDNISONE [Concomitant]
     Active Substance: PREDNISONE
  4. LEVOTHYROXINE [Concomitant]
     Active Substance: LEVOTHYROXINE
  5. COENZYME Q10 [Concomitant]
     Active Substance: DIETARY SUPPLEMENT\UBIDECARENONE
  6. BENADRYL [Concomitant]
     Active Substance: DIPHENHYDRAMINE HYDROCHLORIDE
  7. OMEPRAZOLE [Concomitant]
     Active Substance: OMEPRAZOLE
  8. CIALIS [Concomitant]
     Active Substance: TADALAFIL
  9. ERGOCALCIFEROL [Concomitant]
     Active Substance: ERGOCALCIFEROL
  10. XARELTO [Concomitant]
     Active Substance: RIVAROXABAN
  11. SIMVASTATIN [Concomitant]
     Active Substance: SIMVASTATIN
  12. PROLIA [Concomitant]
     Active Substance: DENOSUMAB
  13. DULOXETINE [Concomitant]
     Active Substance: DULOXETINE
  14. EPIPEN [Concomitant]
     Active Substance: EPINEPHRINE

REACTIONS (8)
  - Cardiac disorder [Unknown]
  - Sinusitis [Unknown]
  - Arthritis [Unknown]
  - Giant cell arteritis [Unknown]
  - Urticaria [Unknown]
  - Antiphospholipid syndrome [Unknown]
  - Osteoporosis [Unknown]
  - Bursitis [Unknown]
